FAERS Safety Report 14920976 (Version 5)
Quarter: 2020Q1

REPORT INFORMATION
  Report Type: Spontaneous
  Country: US (occurrence: US)
  Receive Date: 20180521
  Receipt Date: 20200228
  Transmission Date: 20200409
  Serious: No
  Sender: FDA-Public Use
  Company Number: US-ACTELION-A-NJ2018-171584

PATIENT
  Age: 80 Year
  Sex: Female
  Weight: 64.85 kg

DRUGS (6)
  1. REVATIO [Concomitant]
     Active Substance: SILDENAFIL CITRATE
  2. UPTRAVI [Suspect]
     Active Substance: SELEXIPAG
     Dosage: 200 MCG, BID
     Route: 048
  3. WARFARIN [Concomitant]
     Active Substance: WARFARIN
  4. UPTRAVI [Suspect]
     Active Substance: SELEXIPAG
     Indication: PULMONARY ARTERIAL HYPERTENSION
     Dosage: 600 MCG, BID
     Route: 048
  5. UPTRAVI [Suspect]
     Active Substance: SELEXIPAG
     Dosage: 400 MCG, BID
     Route: 048
  6. OPSUMIT [Suspect]
     Active Substance: MACITENTAN
     Indication: PULMONARY ARTERIAL HYPERTENSION
     Dosage: 10 MG, QD
     Route: 048
     Dates: start: 20170818

REACTIONS (12)
  - Abdominal discomfort [Unknown]
  - Onychomycosis [Not Recovered/Not Resolved]
  - Wrong technique in product usage process [Unknown]
  - Dyspnoea exertional [Not Recovered/Not Resolved]
  - Hepatomegaly [Unknown]
  - Intentional underdose [Unknown]
  - Headache [Unknown]
  - Retching [Unknown]
  - Epistaxis [Unknown]
  - Feeling abnormal [Unknown]
  - Therapy non-responder [Unknown]
  - Nausea [Unknown]

NARRATIVE: CASE EVENT DATE: 20180425
